FAERS Safety Report 8581944-6 (Version None)
Quarter: 2012Q3

REPORT INFORMATION
  Report Type: 
  Country: None (occurrence: None)
  Receive Date: 20120809
  Receipt Date: 20120730
  Transmission Date: 20120928
  Serious: Yes (Hospitalization)
  Sender: FDA-Public Use
  Company Number: CA-FRI-1000037667

PATIENT
  Sex: Female

DRUGS (2)
  1. ROFLUMILAST [Suspect]
     Dosage: 0.5 DF
     Route: 048
     Dates: start: 20120524, end: 20120601
  2. ROFLUMILAST [Suspect]
     Dosage: 0.5 DF
     Route: 048
     Dates: start: 20120101

REACTIONS (4)
  - MALAISE [None]
  - DIARRHOEA [None]
  - HEART RATE INCREASED [None]
  - WRONG TECHNIQUE IN DRUG USAGE PROCESS [None]
